FAERS Safety Report 5532230-X (Version None)
Quarter: 2007Q4

REPORT INFORMATION
  Report Type: 
  Country: None (occurrence: None)
  Receive Date: 20071203
  Receipt Date: 20071122
  Transmission Date: 20080405
  Serious: Yes (Hospitalization, Other)
  Sender: FDA-Public Use
  Company Number: FR-JNJFOC-20071001212

PATIENT
  Age: 42 Year
  Sex: Male

DRUGS (6)
  1. REMICADE [Suspect]
     Dosage: SEVENTH INFUSION
     Route: 042
  2. REMICADE [Suspect]
     Indication: ANKYLOSING SPONDYLITIS
     Route: 042
  3. CHRONO-INDOCID [Suspect]
     Indication: DRUG USE FOR UNKNOWN INDICATION
     Dosage: 1 TO 2 DOSES DAILY, 75-150MG
     Route: 048
  4. PERFALGAN [Concomitant]
     Indication: PREMEDICATION
  5. POLARAMINE [Concomitant]
     Indication: PREMEDICATION
  6. ACETAMINOPHEN [Concomitant]
     Dosage: 1 TO 6 DAILY AND ONGOING

REACTIONS (10)
  - ASTHENIA [None]
  - BACK PAIN [None]
  - CHEILITIS [None]
  - CHEST DISCOMFORT [None]
  - COUGH [None]
  - INFUSION RELATED REACTION [None]
  - LIP SWELLING [None]
  - MUSCULOSKELETAL PAIN [None]
  - NAUSEA [None]
  - PANCREATITIS ACUTE [None]
